FAERS Safety Report 7931512 (Version 5)
Quarter: 2013Q1

REPORT INFORMATION
  Report Type: Spontaneous
  Country: US (occurrence: US)
  Receive Date: 20110505
  Receipt Date: 20130107
  Transmission Date: 20140127
  Serious: No
  Sender: FDA-Public Use
  Company Number: US-B.I. PHARMACEUTICALS,INC./RIDGEFIELD-2011-BP-11299BP

PATIENT
  Age: 64 None
  Sex: Female

DRUGS (20)
  1. SPIRIVA HANDIHALER [Suspect]
     Indication: CHRONIC OBSTRUCTIVE PULMONARY DISEASE
     Dosage: 18 MCG
     Route: 055
     Dates: start: 2008
  2. SPIRIVA HANDIHALER [Suspect]
     Indication: EMPHYSEMA
  3. TRANXENE [Concomitant]
     Indication: ANXIETY
     Dosage: 7.5 MG
     Route: 048
     Dates: start: 1978
  4. SYNTHROID [Concomitant]
     Indication: HYPOTHYROIDISM
     Dosage: 50 MCG
     Route: 048
  5. PROPANOLOL [Concomitant]
     Indication: AORTIC VALVE PROLAPSE
     Dosage: 80 MG
     Route: 048
     Dates: start: 1978, end: 20110417
  6. PROPANOLOL [Concomitant]
     Indication: CARDIAC DISORDER
     Dosage: 60 MG
     Route: 048
     Dates: start: 20110418
  7. PROPANOLOL [Concomitant]
     Dosage: 40 MG
     Route: 048
  8. PROPANOLOL [Concomitant]
     Dosage: 20 MG
     Route: 048
     Dates: start: 1978
  9. INDERAL [Concomitant]
     Indication: ANXIETY
     Dosage: 60 MG
     Route: 048
     Dates: start: 1980
  10. INDERAL [Concomitant]
     Indication: CARDIAC DISORDER
  11. INDERAL [Concomitant]
     Indication: AORTIC VALVE PROLAPSE
  12. INDERAL [Concomitant]
     Indication: HYPERTENSION
  13. INDERAL [Concomitant]
     Indication: PALPITATIONS
  14. LEVOTHYROXINE [Concomitant]
     Indication: THYROID DISORDER
     Dosage: 50 MCG
     Route: 048
     Dates: start: 200712
  15. LEVOTHYROXINE [Concomitant]
     Indication: HYPOTHYROIDISM
  16. CLORAZEPATE [Concomitant]
     Indication: ANXIETY
     Dosage: 22.5 MG
     Route: 048
     Dates: start: 1978
  17. CLORAZEPATE [Concomitant]
     Indication: PANIC ATTACK
  18. CLORAZEPATE [Concomitant]
     Indication: CARDIAC DISORDER
  19. ASA [Concomitant]
     Indication: CHEST PAIN
  20. VENTOLIN [Concomitant]
     Indication: CHRONIC OBSTRUCTIVE PULMONARY DISEASE
     Route: 055
     Dates: start: 2011

REACTIONS (31)
  - Tremor [Recovered/Resolved]
  - Paraesthesia [Not Recovered/Not Resolved]
  - Headache [Recovered/Resolved]
  - Chest discomfort [Not Recovered/Not Resolved]
  - Anxiety [Not Recovered/Not Resolved]
  - Dysphonia [Not Recovered/Not Resolved]
  - Nausea [Not Recovered/Not Resolved]
  - Tearfulness [Not Recovered/Not Resolved]
  - Dyspnoea [Not Recovered/Not Resolved]
  - Vision blurred [Not Recovered/Not Resolved]
  - Fatigue [Recovered/Resolved]
  - Dysphonia [Not Recovered/Not Resolved]
  - Hyperhidrosis [Not Recovered/Not Resolved]
  - Chronic obstructive pulmonary disease [Not Recovered/Not Resolved]
  - Weight increased [Not Recovered/Not Resolved]
  - Visual acuity reduced [Not Recovered/Not Resolved]
  - Emphysema [Recovered/Resolved]
  - Asthenia [Recovered/Resolved]
  - Dyspnoea [Not Recovered/Not Resolved]
  - Incorrect dose administered [Unknown]
  - Heart rate increased [Recovered/Resolved]
  - Dyspnoea [Recovered/Resolved]
  - Cough [Recovered/Resolved]
  - Dyspnoea [Not Recovered/Not Resolved]
  - Fatigue [Not Recovered/Not Resolved]
  - Dyspnoea [Not Recovered/Not Resolved]
  - Diverticulum [Not Recovered/Not Resolved]
  - Headache [Not Recovered/Not Resolved]
  - Blood cholesterol increased [Unknown]
  - Product quality issue [Not Recovered/Not Resolved]
  - Product quality issue [Not Recovered/Not Resolved]
